FAERS Safety Report 9790113 (Version 1)
Quarter: 2013Q4

REPORT INFORMATION
  Report Type: Report from Study
  Country: US (occurrence: US)
  Receive Date: 20131231
  Receipt Date: 20131231
  Transmission Date: 20140711
  Serious: Yes (Other)
  Sender: FDA-Public Use
  Company Number: US-MYLANLABS-2013S1028658

PATIENT
  Age: 55 Year
  Sex: Female

DRUGS (2)
  1. MITOXANTRONE [Suspect]
     Indication: BREAST CANCER
     Route: 065
  2. THIOTEPA [Suspect]
     Indication: BREAST CANCER
     Route: 065

REACTIONS (1)
  - Myelodysplastic syndrome [Unknown]
